FAERS Safety Report 15861746 (Version 1)
Quarter: 2019Q1

REPORT INFORMATION
  Report Type: Spontaneous
  Country: US (occurrence: US)
  Receive Date: 20190124
  Receipt Date: 20190124
  Transmission Date: 20190417
  Serious: No
  Sender: FDA-Public Use
  Company Number: US-PFIZER INC-2017500259

PATIENT
  Age: 71 Year
  Sex: Female
  Weight: 65 kg

DRUGS (20)
  1. LYRICA [Suspect]
     Active Substance: PREGABALIN
     Indication: BACK PAIN
  2. NORCO [Concomitant]
     Active Substance: ACETAMINOPHEN\HYDROCODONE BITARTRATE
     Dosage: UNK [HYDROCODONE BITARTRATE 7.5MG/PARACETAMOL 32.5MG]
  3. PNEUMOCOCCAL POLYSACCHARIDE VACCINE [Concomitant]
     Active Substance: PNEUMOCOCCAL VACCINE POLYVALENT
     Dosage: UNK
     Dates: start: 20140724, end: 20140724
  4. LYRICA [Suspect]
     Active Substance: PREGABALIN
     Indication: FIBROMYALGIA
  5. SYNTHROID [Concomitant]
     Active Substance: LEVOTHYROXINE SODIUM
     Dosage: 125 UG, UNK
  6. INFLUENZA TRIVALENT HIGH DOSE PRESERVATIVE [Concomitant]
     Dosage: UNK
     Route: 030
     Dates: start: 20151019, end: 20151019
  7. INFLUENZA TRIVALENT HIGH DOSE PRESERVATIVE [Concomitant]
     Dosage: UNK
     Route: 030
     Dates: start: 20161021, end: 20161021
  8. INFLUENZA TRIVALENT HIGH DOSE PRESERVATIVE [Concomitant]
     Dosage: UNK
     Route: 030
     Dates: start: 20171003, end: 20171003
  9. LYRICA [Suspect]
     Active Substance: PREGABALIN
     Indication: NEURALGIA
     Dosage: UNK
  10. VITAMIN D3 [Concomitant]
     Active Substance: CHOLECALCIFEROL
     Dosage: 1000 IU, UNK
  11. CARDIZEM [DILTIAZEM HYDROCHLORIDE] [Concomitant]
     Active Substance: DILTIAZEM HYDROCHLORIDE
     Dosage: 30 MG, UNK
  12. SYNTHROID [Concomitant]
     Active Substance: LEVOTHYROXINE SODIUM
     Dosage: 25 UG, UNK
  13. LYRICA [Suspect]
     Active Substance: PREGABALIN
     Indication: PAIN IN EXTREMITY
     Dosage: 50 MG, 3X/DAY
     Route: 048
     Dates: start: 20171101
  14. PREMARIN [Concomitant]
     Active Substance: ESTROGENS, CONJUGATED
     Dosage: UNK
     Route: 067
  15. INFLUENZA TRIVALENT HIGH DOSE PRESERVATIVE [Concomitant]
     Dosage: UNK
     Route: 030
     Dates: start: 20141105, end: 20141105
  16. ZOSTER [Concomitant]
     Dosage: UNK
     Dates: start: 20161220
  17. FLONASE [Concomitant]
     Active Substance: FLUTICASONE PROPIONATE
     Dosage: UNK (50MCG/ACTUATION NASAL SPRAY)
     Route: 045
  18. CYANOCOBALAMIN. [Concomitant]
     Active Substance: CYANOCOBALAMIN
     Dosage: 500 UG, UNK
  19. DESYREL [Concomitant]
     Active Substance: TRAZODONE HYDROCHLORIDE
     Dosage: 100 MG, UNK
  20. PNEUMOCOCCAL CONJUGATE 13 [Concomitant]
     Dosage: UNK
     Dates: start: 20161021, end: 20161021

REACTIONS (3)
  - Somnolence [Unknown]
  - Muscle spasms [Recovering/Resolving]
  - Drug hypersensitivity [Unknown]

NARRATIVE: CASE EVENT DATE: 201812
